FAERS Safety Report 9354682 (Version 1)
Quarter: 2013Q2

REPORT INFORMATION
  Report Type: Spontaneous
  Country: US (occurrence: US)
  Receive Date: 20130619
  Receipt Date: 20130619
  Transmission Date: 20140414
  Serious: Yes (Other)
  Sender: FDA-Public Use
  Company Number: US-JNJCP-30000166870

PATIENT
  Sex: Female
  Weight: 68 kg

DRUGS (20)
  1. AVEENO POSITIVELY AGELESS YOUTH PERFECTING MOISTURIZER SPF 30 [Suspect]
     Indication: DRY SKIN PROPHYLAXIS
     Dosage: DIME SIZE AMOUNT, DAILY
     Route: 061
     Dates: end: 20130506
  2. NO DRUG NAME [Concomitant]
  3. NO DRUG NAME [Concomitant]
  4. NO DRUG NAME [Concomitant]
  5. NO DRUG NAME [Concomitant]
  6. NO DRUG NAME [Concomitant]
  7. AVEENO POSITIVELY AGELESS FIRMING BODY LOTION [Suspect]
     Dosage: DIME SIZE AMOUNT, ONCE A DAY
     Route: 061
     Dates: end: 20130506
  8. AVEENO POSITIVELY AGELESS RECONDITIONING NIGHT CREAM [Suspect]
     Dosage: DIME SIZE AMOUNT, ONCE A DAY
     Route: 061
     Dates: end: 20130506
  9. AVEENO CONTINUOUS PROTECTION SUNBLOCK FACE SPF70 [Suspect]
     Indication: PROPHYLAXIS
     Dosage: DIME SIZE AMOUNT, ONCE A DAY
     Route: 061
     Dates: end: 20130506
  10. AVEENO PROTECT HYDRATE SUNSCREEN LOTION BROAD SPECTRUM SPF 70 [Suspect]
     Indication: PROPHYLAXIS
     Dosage: DIME SIZE AMOUNT, ONCE A DAY
     Route: 061
     Dates: end: 20130506
  11. AVEENO POSITIVELY AGELESS DAILY EXFOLIATING CLEANSER [Suspect]
     Indication: REMOVAL OF INERT MATTER FROM SKIN OR SUBCUTANEOUS TISSUE
     Dosage: DIME SIZE, ONCE A DAY
     Route: 061
     Dates: end: 20130506
  12. AVEENO POSITIVELY AGELESS FIRMING BODY LOTION [Suspect]
     Indication: PRODUCT USED FOR UNKNOWN INDICATION
     Route: 061
  13. NO DRUG NAME [Concomitant]
  14. NO DRUG NAME [Concomitant]
  15. NO DRUG NAME [Concomitant]
  16. CYRUTA PLUS [Concomitant]
  17. IMMUTLEX [Concomitant]
  18. MUTIZYME [Concomitant]
  19. PAROTID TMG [Concomitant]
  20. TRIBLUS [Concomitant]

REACTIONS (1)
  - Metal poisoning [Recovering/Resolving]
